FAERS Safety Report 9331652 (Version 1)
Quarter: 2013Q2

REPORT INFORMATION
  Report Type: Spontaneous
  Country: US (occurrence: US)
  Receive Date: 20130605
  Receipt Date: 20130605
  Transmission Date: 20140414
  Serious: Yes (Other)
  Sender: FDA-Public Use
  Company Number: US-BAYER-2013-067258

PATIENT
  Age: 48 Year
  Sex: Male
  Weight: 63.49 kg

DRUGS (3)
  1. ALEVE TABLET [Suspect]
     Indication: HEADACHE
     Dosage: 2-3 TABLETS, PRN
     Route: 048
     Dates: start: 2003
  2. ALEVE TABLET [Suspect]
     Indication: MIGRAINE
  3. INSULIN [Concomitant]

REACTIONS (4)
  - Aphagia [Recovered/Resolved]
  - Nausea [Recovered/Resolved]
  - Abdominal discomfort [Recovered/Resolved]
  - Inappropriate schedule of drug administration [None]
